FAERS Safety Report 20609576 (Version 6)
Quarter: 2022Q3

REPORT INFORMATION
  Report Type: Spontaneous
  Country: HU (occurrence: HU)
  Receive Date: 20220318
  Receipt Date: 20220719
  Transmission Date: 20221026
  Serious: Yes (Death, Hospitalization, Other)
  Sender: FDA-Public Use
  Company Number: HU-CELGENE-HUN-20220207684

PATIENT
  Age: 63 Year
  Sex: Female

DRUGS (9)
  1. DARZALEX [Suspect]
     Active Substance: DARATUMUMAB
     Indication: Plasma cell myeloma
     Route: 065
  2. DARZALEX [Suspect]
     Active Substance: DARATUMUMAB
     Indication: Plasma cell leukaemia
  3. DEXAMETHASONE [Suspect]
     Active Substance: DEXAMETHASONE
     Indication: Plasma cell myeloma
     Route: 065
  4. DEXAMETHASONE [Suspect]
     Active Substance: DEXAMETHASONE
     Indication: Plasma cell leukaemia
  5. LENALIDOMIDE [Suspect]
     Active Substance: LENALIDOMIDE
     Indication: Plasma cell myeloma
     Route: 048
  6. LENALIDOMIDE [Suspect]
     Active Substance: LENALIDOMIDE
     Indication: Plasma cell leukaemia
  7. KYPROLIS [Suspect]
     Active Substance: CARFILZOMIB
     Indication: Plasma cell myeloma
     Dosage: UNK
     Route: 065
  8. KYPROLIS [Suspect]
     Active Substance: CARFILZOMIB
     Indication: Plasma cell leukaemia
  9. MELPHALAN [Concomitant]
     Active Substance: MELPHALAN
     Dosage: UNK
     Route: 065

REACTIONS (8)
  - Cerebral toxoplasmosis [Fatal]
  - Pseudomembranous colitis [Unknown]
  - Clostridial sepsis [Unknown]
  - Klebsiella sepsis [Unknown]
  - Renal impairment [Unknown]
  - Cytopenia [Unknown]
  - Plasma cell myeloma refractory [Unknown]
  - Clostridium difficile colitis [Recovered/Resolved]
